APPROVED DRUG PRODUCT: ALPRAZOLAM
Active Ingredient: ALPRAZOLAM
Strength: 0.5MG/5ML
Dosage Form/Route: SOLUTION;ORAL
Application: A074314 | Product #001
Applicant: ROXANE LABORATORIES INC
Approved: Oct 31, 1993 | RLD: No | RS: No | Type: DISCN